FAERS Safety Report 12446233 (Version 1)
Quarter: 2016Q2

REPORT INFORMATION
  Report Type: Spontaneous
  Country: US (occurrence: None)
  Receive Date: 20160607
  Receipt Date: 20160607
  Transmission Date: 20160815
  Serious: Yes (Other)
  Sender: FDA-Public Use
  Company Number: None

PATIENT
  Age: 63 Year
  Sex: Male
  Weight: 81.65 kg

DRUGS (8)
  1. LOSARTIN/HCTZ [Concomitant]
  2. NASOCORT [Concomitant]
     Active Substance: BUDESONIDE
  3. NIACIN. [Concomitant]
     Active Substance: NIACIN
  4. METFORMIN [Concomitant]
     Active Substance: METFORMIN HYDROCHLORIDE
  5. ASA [Concomitant]
     Active Substance: ASPIRIN
  6. SIMVASTATIN. [Concomitant]
     Active Substance: SIMVASTATIN
  7. VITAMIN D [Concomitant]
     Active Substance: CHOLECALCIFEROL
  8. LANTUS SOLOSTAR [Suspect]
     Active Substance: INSULIN GLARGINE
     Indication: DIABETES MELLITUS
     Dosage: 5 INJECTION(S) ONCE A DAY INTO THE MUSCLE
     Route: 030
     Dates: start: 20130601

REACTIONS (5)
  - Pollakiuria [None]
  - Device defective [None]
  - Needle issue [None]
  - Product quality issue [None]
  - Incorrect dose administered by device [None]

NARRATIVE: CASE EVENT DATE: 20160529
